FAERS Safety Report 7247000-4 (Version None)
Quarter: 2011Q1

REPORT INFORMATION
  Report Type: 
  Country: None (occurrence: None)
  Receive Date: 20110127
  Receipt Date: 20101214
  Transmission Date: 20110831
  Serious: Yes (Other)
  Sender: FDA-Public Use
  Company Number: US-BAXTER-2010BH000145

PATIENT
  Age: 32 Year
  Sex: Male
  Weight: 134 kg

DRUGS (87)
  1. HEPARIN SODIUM INJECTION [Suspect]
     Route: 065
  2. HEPARIN SODIUM INJECTION [Suspect]
     Route: 065
  3. HEPARIN SODIUM INJECTION [Suspect]
     Route: 042
     Dates: start: 20080128, end: 20080128
  4. HEPARIN SODIUM INJECTION [Suspect]
     Route: 042
     Dates: start: 20080128, end: 20080128
  5. HEPARIN SODIUM INJECTION [Suspect]
     Route: 042
     Dates: start: 20080128, end: 20080128
  6. HEPARIN SODIUM INJECTION [Suspect]
     Route: 058
     Dates: start: 20080217
  7. HEPARIN SODIUM INJECTION [Suspect]
     Route: 065
     Dates: start: 20080114, end: 20080114
  8. HEPARIN SODIUM INJECTION [Suspect]
     Route: 065
     Dates: start: 20080114, end: 20080114
  9. HEPARIN SODIUM INJECTION [Suspect]
     Route: 042
     Dates: start: 20080122, end: 20080129
  10. LEXAPRO [Concomitant]
     Indication: PRODUCT USED FOR UNKNOWN INDICATION
     Route: 065
  11. PHENERGAN [Concomitant]
     Indication: PRODUCT USED FOR UNKNOWN INDICATION
     Route: 042
  12. INSULIN [Concomitant]
     Indication: PRODUCT USED FOR UNKNOWN INDICATION
     Route: 065
  13. CYCLOBENZAPRINE [Concomitant]
     Indication: PRODUCT USED FOR UNKNOWN INDICATION
     Route: 065
  14. HEPARIN SODIUM INJECTION [Suspect]
     Route: 042
     Dates: start: 20080128, end: 20080128
  15. HEPARIN SODIUM INJECTION [Suspect]
     Route: 042
     Dates: start: 20080113
  16. HEPARIN SODIUM INJECTION [Suspect]
     Route: 065
     Dates: start: 20080115, end: 20080115
  17. HEPARIN SODIUM INJECTION [Suspect]
     Route: 042
     Dates: start: 20080128, end: 20080128
  18. HEPARIN SODIUM INJECTION [Suspect]
     Route: 042
     Dates: start: 20080128, end: 20080128
  19. HEPARIN SODIUM INJECTION [Suspect]
     Route: 065
     Dates: start: 20080114, end: 20080114
  20. HEPARIN SODIUM 5,000 UNITS IN DEXTROSE 5% [Suspect]
     Indication: THROMBOSIS PROPHYLAXIS
     Route: 042
     Dates: start: 20080127, end: 20080128
  21. TIZANIDINE [Concomitant]
     Indication: PRODUCT USED FOR UNKNOWN INDICATION
     Route: 065
  22. TYLENOL-500 [Concomitant]
     Indication: PRODUCT USED FOR UNKNOWN INDICATION
     Route: 065
  23. REGLAN [Concomitant]
     Indication: PRODUCT USED FOR UNKNOWN INDICATION
     Route: 042
  24. LASIX [Concomitant]
     Indication: PRODUCT USED FOR UNKNOWN INDICATION
     Route: 065
  25. COREG [Concomitant]
     Indication: PRODUCT USED FOR UNKNOWN INDICATION
     Route: 065
  26. HEPARIN SODIUM INJECTION [Suspect]
     Route: 042
     Dates: start: 20080128, end: 20080128
  27. HEPARIN SODIUM INJECTION [Suspect]
     Route: 042
     Dates: start: 20080128, end: 20080128
  28. HEPARIN SODIUM INJECTION [Suspect]
     Route: 042
     Dates: start: 20080113
  29. HEPARIN SODIUM INJECTION [Suspect]
     Route: 065
     Dates: start: 20080115, end: 20080115
  30. HEPARIN SODIUM INJECTION [Suspect]
     Route: 065
     Dates: start: 20080114, end: 20080114
  31. HEPARIN SODIUM INJECTION [Suspect]
     Route: 065
     Dates: start: 20080114, end: 20080114
  32. HEPARIN SODIUM INJECTION [Suspect]
     Route: 065
     Dates: start: 20080114, end: 20080114
  33. POTASSIUM CHLORIDE [Concomitant]
     Indication: PRODUCT USED FOR UNKNOWN INDICATION
     Route: 065
  34. PREDNISONE [Concomitant]
     Indication: PRODUCT USED FOR UNKNOWN INDICATION
     Route: 065
  35. ZOSYN [Concomitant]
     Indication: PRODUCT USED FOR UNKNOWN INDICATION
     Route: 065
  36. HYDROCODONE [Concomitant]
     Indication: PRODUCT USED FOR UNKNOWN INDICATION
     Route: 065
  37. DUONEB [Concomitant]
     Indication: PRODUCT USED FOR UNKNOWN INDICATION
     Route: 065
  38. DIPHENHYDRAMINE [Concomitant]
     Indication: PRODUCT USED FOR UNKNOWN INDICATION
     Route: 065
  39. HEPARIN SODIUM INJECTION [Suspect]
     Indication: INTRAVENOUS CATHETER MANAGEMENT
     Route: 042
     Dates: start: 20080127, end: 20080127
  40. HEPARIN SODIUM INJECTION [Suspect]
     Route: 065
  41. HEPARIN SODIUM INJECTION [Suspect]
     Route: 065
  42. HEPARIN SODIUM INJECTION [Suspect]
     Route: 058
     Dates: start: 20080127, end: 20080220
  43. HEPARIN SODIUM INJECTION [Suspect]
     Route: 042
     Dates: start: 20080113
  44. HEPARIN SODIUM INJECTION [Suspect]
     Route: 042
     Dates: start: 20080113
  45. HEPARIN SODIUM INJECTION [Suspect]
     Route: 058
     Dates: start: 20080217
  46. HEPARIN SODIUM INJECTION [Suspect]
     Route: 065
     Dates: start: 20080114, end: 20080114
  47. INDOMETHACIN [Suspect]
     Indication: PRODUCT USED FOR UNKNOWN INDICATION
     Route: 065
     Dates: start: 20080101, end: 20080128
  48. VANCOMYCIN [Concomitant]
     Indication: PRODUCT USED FOR UNKNOWN INDICATION
     Route: 065
  49. ZOFRAN [Concomitant]
     Indication: PRODUCT USED FOR UNKNOWN INDICATION
     Route: 065
  50. FENTANYL [Concomitant]
     Indication: PRODUCT USED FOR UNKNOWN INDICATION
     Route: 065
  51. PULMICORT [Concomitant]
     Indication: PRODUCT USED FOR UNKNOWN INDICATION
     Route: 065
  52. PROTONIX [Concomitant]
     Indication: PRODUCT USED FOR UNKNOWN INDICATION
     Route: 065
  53. HEPARIN SODIUM INJECTION [Suspect]
     Indication: THROMBOSIS PROPHYLAXIS
     Route: 042
     Dates: start: 20080127, end: 20080127
  54. HEPARIN SODIUM INJECTION [Suspect]
     Route: 042
     Dates: start: 20080128, end: 20080128
  55. HEPARIN SODIUM INJECTION [Suspect]
     Route: 058
     Dates: start: 20080127, end: 20080220
  56. HEPARIN SODIUM INJECTION [Suspect]
     Route: 042
     Dates: start: 20080128, end: 20080128
  57. HEPARIN SODIUM INJECTION [Suspect]
     Route: 042
     Dates: start: 20080128, end: 20080128
  58. HEPARIN SODIUM INJECTION [Suspect]
     Route: 065
     Dates: start: 20080122, end: 20080122
  59. PRILOSEC [Concomitant]
     Indication: PRODUCT USED FOR UNKNOWN INDICATION
     Route: 065
  60. NORCO [Concomitant]
     Indication: PRODUCT USED FOR UNKNOWN INDICATION
     Route: 065
  61. DILAUDID [Concomitant]
     Indication: PRODUCT USED FOR UNKNOWN INDICATION
     Route: 065
  62. ALBUTEROL [Concomitant]
     Indication: PRODUCT USED FOR UNKNOWN INDICATION
     Route: 065
  63. PREDNISONE [Concomitant]
     Route: 065
  64. HEPARIN SODIUM INJECTION [Suspect]
     Indication: HAEMODIALYSIS
     Route: 042
     Dates: start: 20080127, end: 20080127
  65. HEPARIN SODIUM INJECTION [Suspect]
     Route: 065
     Dates: start: 20080115, end: 20080115
  66. AMBIEN [Concomitant]
     Indication: PRODUCT USED FOR UNKNOWN INDICATION
     Route: 065
  67. IPRATROPIUM BROMIDE [Concomitant]
     Indication: PRODUCT USED FOR UNKNOWN INDICATION
     Route: 055
  68. XANAX [Concomitant]
     Indication: PRODUCT USED FOR UNKNOWN INDICATION
     Route: 065
  69. DURAGESIC-50 [Concomitant]
     Indication: PRODUCT USED FOR UNKNOWN INDICATION
     Route: 065
  70. BENTYL [Concomitant]
     Indication: PRODUCT USED FOR UNKNOWN INDICATION
     Route: 065
  71. PREDNISONE [Concomitant]
     Route: 065
  72. HEPARIN SODIUM INJECTION [Suspect]
     Indication: CATHETERISATION CARDIAC
     Route: 042
     Dates: start: 20080127, end: 20080127
  73. HEPARIN SODIUM INJECTION [Suspect]
     Route: 058
     Dates: start: 20080217
  74. DOCUSATE SODIUM [Concomitant]
     Indication: PRODUCT USED FOR UNKNOWN INDICATION
     Route: 065
  75. CELEXA [Concomitant]
     Indication: PRODUCT USED FOR UNKNOWN INDICATION
     Route: 065
  76. FERRLECIT                               /USA/ [Concomitant]
     Indication: PRODUCT USED FOR UNKNOWN INDICATION
     Route: 042
  77. HEPARIN SODIUM INJECTION [Suspect]
     Route: 058
     Dates: start: 20080127, end: 20080220
  78. HEPARIN SODIUM INJECTION [Suspect]
     Route: 058
     Dates: start: 20080127, end: 20080220
  79. HEPARIN SODIUM INJECTION [Suspect]
     Route: 065
     Dates: start: 20080115, end: 20080115
  80. HEPARIN SODIUM INJECTION [Suspect]
     Route: 042
     Dates: start: 20080128, end: 20080128
  81. HEPARIN SODIUM INJECTION [Suspect]
     Route: 058
     Dates: start: 20080217
  82. HEPARIN SODIUM INJECTION [Suspect]
     Route: 065
     Dates: start: 20080114, end: 20080114
  83. PREDNISONE [Suspect]
     Indication: ASTHMA
     Route: 065
     Dates: start: 20080101
  84. AMITRIPTYLINE HCL [Concomitant]
     Indication: PRODUCT USED FOR UNKNOWN INDICATION
     Route: 065
  85. ADVAIR [Concomitant]
     Indication: PRODUCT USED FOR UNKNOWN INDICATION
     Route: 065
  86. DARVOCET-N 100 [Concomitant]
     Indication: PRODUCT USED FOR UNKNOWN INDICATION
     Route: 065
  87. PREDNISONE [Concomitant]
     Route: 065

REACTIONS (51)
  - PULMONARY OEDEMA [None]
  - RESPIRATORY SYNCYTIAL VIRUS INFECTION [None]
  - MOUTH HAEMORRHAGE [None]
  - CHEST PAIN [None]
  - BLISTER [None]
  - MYALGIA [None]
  - ANXIETY [None]
  - NAUSEA [None]
  - RENAL FAILURE ACUTE [None]
  - HISTIOCYTOSIS HAEMATOPHAGIC [None]
  - CARDIAC ENZYMES INCREASED [None]
  - HYPOKALAEMIA [None]
  - RASH PRURITIC [None]
  - CHILLS [None]
  - SEPSIS [None]
  - ATRIAL FIBRILLATION [None]
  - HEPATIC FAILURE [None]
  - IMMUNOSUPPRESSION [None]
  - GASTRIC ULCER [None]
  - INCONTINENCE [None]
  - MULTI-ORGAN FAILURE [None]
  - METABOLIC ENCEPHALOPATHY [None]
  - POST PROCEDURAL HAEMORRHAGE [None]
  - MALNUTRITION [None]
  - GASTROOESOPHAGEAL REFLUX DISEASE [None]
  - FACIAL PAIN [None]
  - GASTROINTESTINAL HAEMORRHAGE [None]
  - HAEMORRHAGIC ANAEMIA [None]
  - CATHETER SITE HAEMORRHAGE [None]
  - PANCYTOPENIA [None]
  - SKIN DISORDER [None]
  - INSOMNIA [None]
  - DISSEMINATED INTRAVASCULAR COAGULATION [None]
  - SYSTEMIC INFLAMMATORY RESPONSE SYNDROME [None]
  - THROMBOCYTOPENIA [None]
  - TRACHEAL STENOSIS [None]
  - PANCREATIC DISORDER [None]
  - EPISTAXIS [None]
  - ASTHENIA [None]
  - RESPIRATORY FAILURE [None]
  - OSTEONECROSIS [None]
  - COLITIS [None]
  - LEUKOCYTOSIS [None]
  - EAR DISORDER [None]
  - HYPOAESTHESIA [None]
  - VOMITING [None]
  - CARDIAC FAILURE CONGESTIVE [None]
  - STILL'S DISEASE ADULT ONSET [None]
  - INTESTINAL FUNCTIONAL DISORDER [None]
  - NEURALGIA [None]
  - URINARY RETENTION [None]
